FAERS Safety Report 24987588 (Version 1)
Quarter: 2025Q1

REPORT INFORMATION
  Report Type: Spontaneous
  Country: ES (occurrence: ES)
  Receive Date: 20250219
  Receipt Date: 20250219
  Transmission Date: 20250409
  Serious: Yes (Death)
  Sender: PFIZER
  Company Number: None

PATIENT
  Age: 83 Year
  Sex: Male
  Weight: 69 kg

DRUGS (6)
  1. XALKORI [Suspect]
     Active Substance: CRIZOTINIB
     Indication: Lung adenocarcinoma
     Dosage: 250 MG, 2X/DAY (250MG/12H)
     Route: 048
     Dates: start: 20211231, end: 20220102
  2. FUROSEMIDE [Concomitant]
     Active Substance: FUROSEMIDE
     Route: 048
     Dates: start: 20120101
  3. FAMOTIDINA CINFA [Concomitant]
     Indication: Gastritis prophylaxis
     Dosage: 40 MG, DAILY
     Route: 048
     Dates: start: 20210628
  4. ENOXAPARIN SODIUM [Concomitant]
     Active Substance: ENOXAPARIN SODIUM
     Indication: Prophylaxis
     Dosage: 6000 IU, DAILY ((60 MG)/0,6 ML)
     Route: 058
     Dates: start: 20210101
  5. BISOPROLOL [Concomitant]
     Active Substance: BISOPROLOL
     Route: 048
     Dates: start: 20160101
  6. PREDNISONE [Concomitant]
     Active Substance: PREDNISONE
     Dosage: 20 MG, DAILY
     Route: 048
     Dates: start: 20200101

REACTIONS (3)
  - Sudden death [Fatal]
  - Malaise [Fatal]
  - Palpitations [Fatal]

NARRATIVE: CASE EVENT DATE: 20220101
